FAERS Safety Report 8190291-6 (Version None)
Quarter: 2012Q1

REPORT INFORMATION
  Report Type: 
  Country: None (occurrence: None)
  Receive Date: 20120307
  Receipt Date: 20120301
  Transmission Date: 20120608
  Serious: Yes (Death)
  Sender: FDA-Public Use
  Company Number: FR-ELI_LILLY_AND_COMPANY-FR201201007890

PATIENT
  Age: 60 Year
  Sex: Male

DRUGS (2)
  1. CREON [Concomitant]
     Indication: PANCREATIC DISORDER
  2. CIALIS [Suspect]
     Indication: SEXUAL DYSFUNCTION
     Dosage: UNK
     Route: 048
     Dates: start: 20110421

REACTIONS (1)
  - ANEURYSM RUPTURED [None]
